FAERS Safety Report 5766442-7 (Version None)
Quarter: 2008Q2

REPORT INFORMATION
  Report Type: 
  Country: None (occurrence: None)
  Receive Date: 20080611
  Receipt Date: 20080516
  Transmission Date: 20081010
  Serious: No
  Sender: FDA-Public Use
  Company Number: US-BOEHRINGER INGELHEIM GMBH, GERMANY-2006-BP-04171BP

PATIENT
  Age: 69 Year
  Sex: Male

DRUGS (3)
  1. FLOMAX [Suspect]
     Indication: DYSURIA
     Route: 048
     Dates: start: 20060101
  2. ASPIRIN [Concomitant]
  3. VITAMINS [Concomitant]

REACTIONS (4)
  - BACK PAIN [None]
  - DYSURIA [None]
  - NASAL CONGESTION [None]
  - RHINORRHOEA [None]
